FAERS Safety Report 9733016 (Version 2)
Quarter: 2013Q4

REPORT INFORMATION
  Report Type: Spontaneous
  Country: US (occurrence: US)
  Receive Date: 20131205
  Receipt Date: 20131205
  Transmission Date: 20140711
  Serious: Yes (Other)
  Sender: FDA-Public Use
  Company Number: US-BMSGILMSD-2009-0022314

PATIENT
  Age: 44 Year
  Sex: Male
  Weight: 78.47 kg

DRUGS (3)
  1. ATRIPLA [Suspect]
     Indication: HIV INFECTION
     Route: 048
     Dates: start: 20061214, end: 20090519
  2. ZOLOFT [Concomitant]
     Indication: DEPRESSION
     Route: 048
     Dates: start: 2005
  3. LONOX [Concomitant]
     Indication: DIARRHOEA
     Route: 048

REACTIONS (1)
  - Fanconi syndrome acquired [Recovering/Resolving]
